FAERS Safety Report 10672040 (Version 1)
Quarter: 2014Q4

REPORT INFORMATION
  Report Type: Spontaneous
  Country: NG (occurrence: NG)
  Receive Date: 20141223
  Receipt Date: 20141223
  Transmission Date: 20150529
  Serious: Yes (Death, Other)
  Sender: FDA-Public Use
  Company Number: NG-BAXTER-2014BAX075047

PATIENT
  Age: 18 Year
  Sex: Female

DRUGS (2)
  1. ENDOXAN 1G [Suspect]
     Active Substance: CYCLOPHOSPHAMIDE
     Indication: BURKITT^S LYMPHOMA
     Route: 042
  2. ENDOXAN 1G [Suspect]
     Active Substance: CYCLOPHOSPHAMIDE
     Route: 042

REACTIONS (8)
  - Leukopenia [Recovered/Resolved]
  - False labour [Recovered/Resolved]
  - Dyspnoea [Unknown]
  - Sudden death [Fatal]
  - Premature labour [Recovered/Resolved]
  - Premature delivery [Recovered/Resolved]
  - Disease progression [Unknown]
  - Exposure during pregnancy [Recovered/Resolved]
